FAERS Safety Report 14493260 (Version 1)
Quarter: 2018Q1

REPORT INFORMATION
  Report Type: Spontaneous
  Country: US (occurrence: US)
  Receive Date: 20180205
  Receipt Date: 20180205
  Transmission Date: 20180509
  Serious: Yes (Disabling)
  Sender: FDA-Public Use
  Company Number: None

PATIENT
  Age: 42 Year
  Sex: Female
  Weight: 104.85 kg

DRUGS (5)
  1. DULOXETINE. [Concomitant]
     Active Substance: DULOXETINE
  2. RISPERIDONE. [Concomitant]
     Active Substance: RISPERIDONE
  3. HYDROCODONE [Suspect]
     Active Substance: HYDROCODONE
     Indication: PAIN
     Dosage: ?          QUANTITY:1 TABLET(S);?EVERY 8 HOURS ORAL
     Route: 048
     Dates: start: 20180109, end: 20180131
  4. HYDROCODONE [Suspect]
     Active Substance: HYDROCODONE
     Indication: MENISCUS INJURY
     Dosage: ?          QUANTITY:1 TABLET(S);?EVERY 8 HOURS ORAL
     Route: 048
     Dates: start: 20180109, end: 20180131
  5. LAMOTRAGINE [Concomitant]
     Active Substance: LAMOTRIGINE

REACTIONS (2)
  - Anxiety [None]
  - Abnormal behaviour [None]

NARRATIVE: CASE EVENT DATE: 20180202
